FAERS Safety Report 23513307 (Version 1)
Quarter: 2024Q1

REPORT INFORMATION
  Report Type: Spontaneous
  Country: US (occurrence: None)
  Receive Date: 20240210
  Receipt Date: 20240210
  Transmission Date: 20240410
  Serious: Yes (Hospitalization)
  Sender: FDA-Public Use
  Company Number: None

PATIENT
  Age: 69 Year
  Sex: Female
  Weight: 56.25 kg

DRUGS (10)
  1. XGEVA [Suspect]
     Active Substance: DENOSUMAB
     Indication: Plasma cell myeloma
     Dates: start: 20190101, end: 20230501
  2. XGEVA [Suspect]
     Active Substance: DENOSUMAB
     Indication: Bone operation
  3. ASPIRIN [Concomitant]
     Active Substance: ASPIRIN
  4. VITAMIN D NOS [Concomitant]
     Active Substance: VITAMIN D NOS
  5. INTEGRA+ [Concomitant]
  6. VITAMIN B12 [Concomitant]
     Active Substance: CYANOCOBALAMIN
  7. VITAMIN E [Concomitant]
     Active Substance: .ALPHA.-TOCOPHEROL
  8. OXYCODONE [Concomitant]
     Active Substance: OXYCODONE\OXYCODONE HYDROCHLORIDE
  9. Augmenting [Concomitant]
  10. pentoxphylline [Concomitant]

REACTIONS (6)
  - Oral disorder [None]
  - Osteonecrosis of jaw [None]
  - Disease complication [None]
  - Oral pain [None]
  - Mouth swelling [None]
  - Hypoaesthesia oral [None]

NARRATIVE: CASE EVENT DATE: 20230101
